FAERS Safety Report 21928039 (Version 1)
Quarter: 2023Q1

REPORT INFORMATION
  Report Type: Report from Study
  Country: HN (occurrence: HN)
  Receive Date: 20230130
  Receipt Date: 20230130
  Transmission Date: 20230417
  Serious: Yes (Other)
  Sender: FDA-Public Use
  Company Number: HN-MYLANLABS-2022M1130543

PATIENT
  Age: 64 Year
  Sex: Female
  Weight: 56.69 kg

DRUGS (2)
  1. LIPITOR [Suspect]
     Active Substance: ATORVASTATIN CALCIUM
     Indication: Hypercholesterolaemia
     Dosage: 20 MILLIGRAM, QD, (1 TABLET)
     Route: 048
     Dates: start: 20210123
  2. LIPITOR [Suspect]
     Active Substance: ATORVASTATIN CALCIUM
     Indication: Hypercholesterolaemia
     Dosage: 10 MILLIGRAM, QD (1 TABLET DAILY)
     Route: 048
     Dates: start: 20080123

REACTIONS (3)
  - Cerebrovascular accident [Unknown]
  - Salivary hypersecretion [Not Recovered/Not Resolved]
  - Off label use [Unknown]

NARRATIVE: CASE EVENT DATE: 20190123
